FAERS Safety Report 10025361 (Version 2)
Quarter: 2014Q1

REPORT INFORMATION
  Report Type: Spontaneous
  Country: TW (occurrence: TW)
  Receive Date: 20140320
  Receipt Date: 20140321
  Transmission Date: 20141002
  Serious: Yes (Other)
  Sender: FDA-Public Use
  Company Number: TW-GLAXOSMITHKLINE-B0977770A

PATIENT
  Age: 49 Year
  Sex: Female
  Weight: 48.6 kg

DRUGS (1)
  1. REVOLADE [Suspect]
     Indication: PRODUCT USED FOR UNKNOWN INDICATION
     Route: 048
     Dates: start: 20130619, end: 20140207

REACTIONS (3)
  - Iron deficiency anaemia [Recovering/Resolving]
  - Myalgia [Recovered/Resolved]
  - Respiratory tract infection [Recovered/Resolved]
